FAERS Safety Report 5806050-2 (Version None)
Quarter: 2008Q3

REPORT INFORMATION
  Report Type: 
  Country: None (occurrence: None)
  Receive Date: 20080710
  Receipt Date: 20080703
  Transmission Date: 20090109
  Serious: Yes (Other)
  Sender: FDA-Public Use
  Company Number: US-ABBOTT-08P-163-0460878-00

PATIENT
  Sex: Male
  Weight: 65.376 kg

DRUGS (3)
  1. KALETRA [Suspect]
     Indication: HIV INFECTION
     Dosage: 200/50MG
     Route: 048
     Dates: start: 20060101
  2. ZYAGEN [Concomitant]
     Indication: DRUG USE FOR UNKNOWN INDICATION
  3. VIDEC EC [Concomitant]
     Indication: DRUG USE FOR UNKNOWN INDICATION

REACTIONS (2)
  - DYSPEPSIA [None]
  - INTESTINAL OBSTRUCTION [None]
